FAERS Safety Report 6730797-7 (Version None)
Quarter: 2010Q2

REPORT INFORMATION
  Report Type: 
  Country: None (occurrence: None)
  Receive Date: 20100518
  Receipt Date: 20100509
  Transmission Date: 20101027
  Serious: Yes (Other)
  Sender: FDA-Public Use
  Company Number: US-PFIZER INC-2010058852

PATIENT
  Sex: Female
  Weight: 54.422 kg

DRUGS (3)
  1. LYRICA [Suspect]
     Indication: CONVULSION
     Dosage: 75 MG, 3X/DAY
     Route: 048
     Dates: start: 20100101
  2. DEPAKOTE [Concomitant]
     Indication: CONVULSION
     Dosage: 250 MG, 4X/DAY
     Route: 048
     Dates: start: 20070101
  3. DEPAKOTE [Concomitant]
     Dosage: 250 MG, 3X/DAY

REACTIONS (2)
  - INTESTINAL OPERATION [None]
  - RASH ERYTHEMATOUS [None]
